APPROVED DRUG PRODUCT: AMANTADINE HYDROCHLORIDE
Active Ingredient: AMANTADINE HYDROCHLORIDE
Strength: 100MG
Dosage Form/Route: CAPSULE;ORAL
Application: A078720 | Product #001 | TE Code: AB
Applicant: BIONPHARMA INC
Approved: May 29, 2008 | RLD: No | RS: Yes | Type: RX